FAERS Safety Report 14581833 (Version 3)
Quarter: 2019Q4

REPORT INFORMATION
  Report Type: Spontaneous
  Country: FR (occurrence: FR)
  Receive Date: 20180228
  Receipt Date: 20191205
  Transmission Date: 20200122
  Serious: Yes (Disabling)
  Sender: FDA-Public Use
  Company Number: FR-TEVA-2018-FR-860278

PATIENT
  Age: 52 Year
  Sex: Female
  Weight: 80 kg

DRUGS (4)
  1. ESTREVA 0,1 %, GEL [Suspect]
     Active Substance: ESTRADIOL
     Indication: HIRSUTISM
     Dosage: -
     Route: 062
     Dates: start: 1993, end: 200911
  2. LAMICTAL [Concomitant]
     Active Substance: LAMOTRIGINE
  3. SERESTA [Concomitant]
     Active Substance: OXAZEPAM
  4. ANDROCUR 50 MG [Suspect]
     Active Substance: CYPROTERONE ACETATE
     Indication: HIRSUTISM
     Dosage: 1 DOSAGE FORMS DAILY; 1 DOSAGE FORM EVERY 1 DAY(S) 1 DOSAGE FORMS DAILY;
     Route: 048
     Dates: start: 1993, end: 200911

REACTIONS (1)
  - Meningioma [Recovered/Resolved with Sequelae]

NARRATIVE: CASE EVENT DATE: 200904
